FAERS Safety Report 5956345-7 (Version None)
Quarter: 2008Q4

REPORT INFORMATION
  Report Type: 
  Country: None (occurrence: None)
  Receive Date: 20081118
  Receipt Date: 20081106
  Transmission Date: 20090506
  Serious: Yes (Other)
  Sender: FDA-Public Use
  Company Number: BE-ELI_LILLY_AND_COMPANY-BE200811001790

PATIENT
  Age: 58 Year
  Sex: Female

DRUGS (3)
  1. CYMBALTA [Suspect]
     Indication: MAJOR DEPRESSION
     Dosage: 60 MG, UNKNOWN
     Route: 065
     Dates: start: 20080101, end: 20080101
  2. TRAMADOL HCL [Concomitant]
     Dosage: UNK, DAILY (1/D)
     Route: 065
  3. TETRAZEPAM [Concomitant]
     Dosage: UNK, DAILY (1/D)
     Route: 065

REACTIONS (1)
  - VISUAL ACUITY REDUCED [None]
